FAERS Safety Report 6253373-1 (Version None)
Quarter: 2009Q3

REPORT INFORMATION
  Report Type: 
  Country: None (occurrence: None)
  Receive Date: 20090701
  Receipt Date: 20090626
  Transmission Date: 20100115
  Serious: Yes (Death, Other)
  Sender: FDA-Public Use
  Company Number: PHEH2009US06850

PATIENT
  Sex: Female
  Weight: 72.1 kg

DRUGS (1)
  1. GLEEVEC [Suspect]
     Indication: GASTROINTESTINAL STROMAL TUMOUR
     Dosage: 400 MG, BID
     Route: 048
     Dates: start: 20090101

REACTIONS (2)
  - DRUG ABUSER [None]
  - ENDOCARDITIS [None]
